FAERS Safety Report 24172710 (Version 1)
Quarter: 2024Q3

REPORT INFORMATION
  Report Type: Spontaneous
  Country: SI (occurrence: SI)
  Receive Date: 20240805
  Receipt Date: 20240805
  Transmission Date: 20241016
  Serious: Yes (Death, Life-Threatening, Hospitalization, Disabling)
  Sender: BOEHRINGER INGELHEIM
  Company Number: None

PATIENT
  Age: 82 Year
  Sex: Female

DRUGS (8)
  1. PRADAXA [Suspect]
     Active Substance: DABIGATRAN ETEXILATE MESYLATE
     Indication: Atrial fibrillation
     Route: 048
     Dates: start: 20190110, end: 20240704
  2. Kamiren 2 MG [Concomitant]
     Indication: Product used for unknown indication
  3. LEKADOL 500 MG [Concomitant]
     Indication: Product used for unknown indication
  4. Trittico 150 MG [Concomitant]
     Indication: Product used for unknown indication
  5. Lacipil 4 MG [Concomitant]
     Indication: Product used for unknown indication
  6. Oleovit D3 14400 IU/ML [Concomitant]
     Indication: Product used for unknown indication
     Dosage: STRENGHT: 14400 I.E./ML
  7. Roxiper 10 MG/8 MG/2,5 MG [Concomitant]
     Indication: Product used for unknown indication
     Dosage: STRENGT: 10 MG/8 MG/2,5 MG
  8. BROMAZEPAM [Concomitant]
     Active Substance: BROMAZEPAM
     Indication: Product used for unknown indication

REACTIONS (2)
  - Cerebral haemorrhage [Fatal]
  - Subarachnoid haemorrhage [Fatal]

NARRATIVE: CASE EVENT DATE: 20240704
